FAERS Safety Report 8487892-4 (Version None)
Quarter: 2012Q3

REPORT INFORMATION
  Report Type: 
  Country: None (occurrence: None)
  Receive Date: 20120705
  Receipt Date: 20120625
  Transmission Date: 20120928
  Serious: Yes (Other)
  Sender: FDA-Public Use
  Company Number: US-US-EMD SERONO, INC.-7143557

PATIENT
  Sex: Female

DRUGS (1)
  1. REBIF [Suspect]
     Indication: MULTIPLE SCLEROSIS

REACTIONS (6)
  - DYSKINESIA [None]
  - HYPOAESTHESIA [None]
  - DEPRESSION [None]
  - SKIN LESION [None]
  - SARCOIDOSIS [None]
  - UVEITIS [None]
